FAERS Safety Report 11638665 (Version 1)
Quarter: 2015Q4

REPORT INFORMATION
  Report Type: Spontaneous
  Country: DE (occurrence: DE)
  Receive Date: 20151016
  Receipt Date: 20151016
  Transmission Date: 20160304
  Serious: Yes (Other)
  Sender: FDA-Public Use
  Company Number: DE-BAXTER-2015BAX055427

PATIENT
  Age: 14 Year
  Sex: Male

DRUGS (14)
  1. PREDNISONE. [Suspect]
     Active Substance: PREDNISONE
     Indication: HODGKIN^S DISEASE NODULAR SCLEROSIS
  2. RITUXIMAB [Suspect]
     Active Substance: RITUXIMAB
     Indication: HODGKIN^S DISEASE NODULAR SCLEROSIS
  3. BRENTUXIMAB VEDOTIN [Suspect]
     Active Substance: BRENTUXIMAB VEDOTIN
     Indication: HODGKIN^S DISEASE NODULAR SCLEROSIS
  4. CYCLOPHOSPHAMID TROCKENSUBSTANZ 2 G BAXTER ONCOLOGY [Suspect]
     Active Substance: CYCLOPHOSPHAMIDE
     Indication: EPSTEIN-BARR VIRUS ASSOCIATED LYMPHOMA
     Dosage: DAY 1 AND DAY 8 OF EACH CYCLE, 30-60 MIN INFUSION
     Route: 042
  5. CYCLOPHOSPHAMID TROCKENSUBSTANZ 2 G BAXTER ONCOLOGY [Suspect]
     Active Substance: CYCLOPHOSPHAMIDE
     Indication: HODGKIN^S DISEASE NODULAR SCLEROSIS
     Dosage: DAY 1 AND DAY 8 OF EACH CYCLE, 30-60 MIN INFUSION
     Route: 042
  6. PROCARBAZINE [Suspect]
     Active Substance: PROCARBAZINE
     Indication: HODGKIN^S DISEASE NODULAR SCLEROSIS
     Dosage: DAY 1 TO DAY 15 OF EACH CYCLE, 2 TO 3 TIMES PER DAY
     Route: 048
  7. BRENTUXIMAB VEDOTIN [Suspect]
     Active Substance: BRENTUXIMAB VEDOTIN
     Indication: EPSTEIN-BARR VIRUS ASSOCIATED LYMPHOMA
     Dosage: APPROX. 1.8 MG/KG BODY WEIGHT
     Route: 042
  8. PROCARBAZINE [Suspect]
     Active Substance: PROCARBAZINE
     Indication: EPSTEIN-BARR VIRUS ASSOCIATED LYMPHOMA
     Dosage: DAY 1 TO DAY 15 OF EACH CYCLE, 2 TO 3 TIMES PER DAY
     Route: 048
  9. RITUXIMAB [Suspect]
     Active Substance: RITUXIMAB
     Indication: EPSTEIN-BARR VIRUS ASSOCIATED LYMPHOMA
     Dosage: DAY 8 OF EACH CYCLE, INFUSION OVER 10 HOURS
     Route: 042
  10. BRENTUXIMAB VEDOTIN [Suspect]
     Active Substance: BRENTUXIMAB VEDOTIN
     Indication: EPSTEIN-BARR VIRUS ASSOCIATED LYMPHOMA
     Dosage: APPROX. 1.8 MG/KG BODY WEIGHT
     Route: 042
  11. BRENTUXIMAB VEDOTIN [Suspect]
     Active Substance: BRENTUXIMAB VEDOTIN
     Indication: HODGKIN^S DISEASE NODULAR SCLEROSIS
  12. PREDNISONE. [Suspect]
     Active Substance: PREDNISONE
     Indication: EPSTEIN-BARR VIRUS ASSOCIATED LYMPHOMA
     Dosage: DAY 1 TO DAY 15 OF EACH CYCLE
     Route: 048
  13. VINCRISTINE [Suspect]
     Active Substance: VINCRISTINE
     Indication: EPSTEIN-BARR VIRUS ASSOCIATED LYMPHOMA
     Dosage: DAY 1 AND DAY 8 OF EACH CYCLE, MAX 2 MG
     Route: 042
  14. VINCRISTINE [Suspect]
     Active Substance: VINCRISTINE
     Indication: HODGKIN^S DISEASE NODULAR SCLEROSIS
     Dosage: DAY 1 AND DAY 8 OF EACH CYCLE, MAX 1 MG
     Route: 042

REACTIONS (10)
  - Ataxia telangiectasia [Unknown]
  - Condition aggravated [Unknown]
  - Febrile neutropenia [Unknown]
  - Anaemia [Unknown]
  - Hypersensitivity [Unknown]
  - Platelet count decreased [Unknown]
  - General physical health deterioration [Unknown]
  - Gastroenteritis [Unknown]
  - Weight decreased [Unknown]
  - Oral candidiasis [Unknown]
